FAERS Safety Report 16009672 (Version 2)
Quarter: 2019Q1

REPORT INFORMATION
  Report Type: Spontaneous
  Country: US (occurrence: US)
  Receive Date: 20190227
  Receipt Date: 20190313
  Transmission Date: 20190418
  Serious: No
  Sender: FDA-Public Use
  Company Number: US-SA-2019SA049456

PATIENT
  Age: 45 Year
  Sex: Female

DRUGS (1)
  1. TOUJEO [Suspect]
     Active Substance: INSULIN GLARGINE
     Indication: TYPE 2 DIABETES MELLITUS
     Dosage: 40 U, QD
     Route: 065

REACTIONS (2)
  - Device issue [Unknown]
  - Blood glucose increased [Unknown]
